FAERS Safety Report 7523558-2 (Version None)
Quarter: 2011Q2

REPORT INFORMATION
  Report Type: 
  Country: None (occurrence: None)
  Receive Date: 20110603
  Receipt Date: 20110526
  Transmission Date: 20111010
  Serious: Yes (Hospitalization)
  Sender: FDA-Public Use
  Company Number: GXBR2011US00707

PATIENT
  Sex: Female
  Weight: 43.084 kg

DRUGS (3)
  1. TYLENOL-500 [Concomitant]
     Indication: PYREXIA
     Dosage: UNK MG, PRN
     Route: 048
  2. AZITHROMYCIN [Suspect]
     Indication: BRONCHITIS
     Dosage: 500 MG DAY 1, 250 MG DAYS 2-5
     Route: 048
     Dates: start: 20110130, end: 20110203
  3. ZYRTEC [Concomitant]
     Indication: SEASONAL ALLERGY
     Dosage: UNK MG, PRN
     Route: 048

REACTIONS (12)
  - DYSARTHRIA [None]
  - PYREXIA [None]
  - AMNESIA [None]
  - DELUSION [None]
  - SEDATION [None]
  - ABNORMAL BEHAVIOUR [None]
  - AGITATION [None]
  - HALLUCINATION [None]
  - SOMNOLENCE [None]
  - VOMITING [None]
  - HALLUCINATION, AUDITORY [None]
  - CONFUSIONAL STATE [None]
